FAERS Safety Report 9237927 (Version 1)
Quarter: 2013Q1

REPORT INFORMATION
  Report Type: Spontaneous
  Country: US (occurrence: None)
  Receive Date: 20121107
  Receipt Date: 20121107
  Transmission Date: 20140127
  Serious: No
  Sender: FDA-Public Use
  Company Number: 2012HGS-003730

PATIENT
  Age: 60 Year
  Sex: Female
  Weight: 95.26 kg

DRUGS (7)
  1. BENLYSTA [Suspect]
     Dates: start: 20120607
  2. PLAQUENIL (HYDROXYCHLOROQUINE PHOSPHATE) [Concomitant]
  3. MOBIC (MELOXICAM) [Concomitant]
  4. CALCIUM (CALCIUM) [Concomitant]
  5. PROBIOTICS (PROBIOTICS) [Concomitant]
  6. SYNTHROID (LEVOTHYROXINE SODIUM) [Concomitant]
  7. VITAMIN D (ERGOCALCIFEROL) [Concomitant]

REACTIONS (4)
  - Infusion related reaction [None]
  - Dizziness [None]
  - Headache [None]
  - Nausea [None]
